FAERS Safety Report 7527137-2 (Version None)
Quarter: 2011Q2

REPORT INFORMATION
  Report Type: 
  Country: None (occurrence: None)
  Receive Date: 20110607
  Receipt Date: 20110531
  Transmission Date: 20111010
  Serious: Yes (Death, Other)
  Sender: FDA-Public Use
  Company Number: US-BIOGENIDEC-2011BI010720

PATIENT
  Age: 26 Year
  Sex: Female

DRUGS (2)
  1. TYSABRI [Suspect]
     Indication: CROHN'S DISEASE
     Route: 042
     Dates: start: 20101229, end: 20110131
  2. PREDNISONE [Concomitant]
     Indication: CROHN'S DISEASE
     Dates: start: 20101201, end: 20110213

REACTIONS (5)
  - OESOPHAGITIS [None]
  - PULMONARY EMBOLISM [None]
  - HEPATITIS ACUTE [None]
  - TOXICITY TO VARIOUS AGENTS [None]
  - NEPHROSCLEROSIS [None]
